FAERS Safety Report 9920872 (Version 5)
Quarter: 2014Q2

REPORT INFORMATION
  Report Type: Report from Study
  Country: US (occurrence: US)
  Receive Date: 20140225
  Receipt Date: 20140520
  Transmission Date: 20141212
  Serious: Yes (Hospitalization)
  Sender: FDA-Public Use
  Company Number: US-ROCHE-1350525

PATIENT
  Age: 81 Year
  Sex: Female
  Weight: 53.8 kg

DRUGS (31)
  1. OBINUTUZUMAB [Suspect]
     Indication: DIFFUSE LARGE B-CELL LYMPHOMA
     Dosage: 10/FEB/2014: MOST RECENT DOSE PRIOR TO SERIOUS ADVERSE EVENT (1000 ML. AT CONCENTRATION 4 MG/ML)
     Route: 042
     Dates: start: 20140203
  2. CYCLOPHOSPHAMIDE [Suspect]
     Indication: DIFFUSE LARGE B-CELL LYMPHOMA
     Dosage: 03/FEB/2014: MOST RECENT DOSE PRIOR TO SAE (1140 MG)
     Route: 042
     Dates: start: 20140203
  3. DOXORUBICIN [Suspect]
     Indication: DIFFUSE LARGE B-CELL LYMPHOMA
     Dosage: 03/FEB/2014: MOST RECENT DOSE PRIOR TO SAE 76 MG
     Route: 042
     Dates: start: 20140203
  4. VINCRISTINE [Suspect]
     Indication: DIFFUSE LARGE B-CELL LYMPHOMA
     Dosage: 03/FEB/2014: MOST RECENT DOSE PRIOR TO SAE 2 MG
     Route: 040
     Dates: start: 20140203
  5. PREDNISONE [Suspect]
     Indication: DIFFUSE LARGE B-CELL LYMPHOMA
     Dosage: 07/FEB/2014: MOST RECENT DOSE PRIOR TO SAE: 100 MG
     Route: 048
     Dates: start: 20140203
  6. GABAPENTIN [Concomitant]
     Route: 065
     Dates: start: 20140124
  7. COMPAZINE [Concomitant]
     Indication: NAUSEA
  8. ZOFRAN [Concomitant]
     Indication: NAUSEA
     Route: 065
     Dates: start: 20140203, end: 20140203
  9. ZOFRAN [Concomitant]
     Route: 065
     Dates: start: 20140210, end: 20140210
  10. ALLOPURINOL [Concomitant]
  11. ACYCLOVIR [Concomitant]
     Indication: INFECTION
  12. BENADRYL (UNITED STATES) [Concomitant]
     Route: 065
     Dates: start: 20140203, end: 20140203
  13. DEXAMETHASONE [Concomitant]
     Route: 065
     Dates: start: 20140203, end: 20140203
  14. DEXAMETHASONE [Concomitant]
     Route: 065
     Dates: start: 20140210, end: 20140210
  15. PRILOSEC [Concomitant]
     Indication: GASTROOESOPHAGEAL REFLUX DISEASE
  16. BYSTOLIC [Concomitant]
     Indication: HYPERTENSION
  17. CYMBALTA [Concomitant]
     Indication: PAIN IN EXTREMITY
  18. CYMBALTA [Concomitant]
     Indication: PAIN IN EXTREMITY
  19. CYMBALTA [Concomitant]
     Indication: SENSORY LOSS
  20. DENOSUMAB [Concomitant]
     Indication: OSTEOPOROSIS
  21. CYANOCOBALAMIN [Concomitant]
  22. LUMIGAN [Concomitant]
     Indication: GLAUCOMA
  23. AMLODIPINE [Concomitant]
     Indication: HYPERTENSION
  24. HYDROCORTISONE [Concomitant]
     Indication: TONGUE DISCOLOURATION
     Route: 065
     Dates: start: 20140210
  25. HYDROCORTISONE [Concomitant]
     Indication: OROPHARYNGEAL PAIN
  26. NYSTATIN [Concomitant]
     Indication: OROPHARYNGEAL PAIN
     Route: 065
     Dates: start: 20140210
  27. NYSTATIN [Concomitant]
     Indication: TONGUE DISCOLOURATION
  28. LEVAQUIN [Concomitant]
     Route: 065
     Dates: start: 20140214, end: 20140220
  29. VENOFER [Concomitant]
     Indication: ANAEMIA
     Route: 065
     Dates: start: 20140214, end: 20140214
  30. ONDANSETRON [Concomitant]
     Route: 065
     Dates: start: 20140210, end: 20140210
  31. ONDANSETRON [Concomitant]
     Route: 065
     Dates: start: 20140217, end: 20140217

REACTIONS (1)
  - Febrile neutropenia [Recovered/Resolved]
